FAERS Safety Report 18586135 (Version 7)
Quarter: 2022Q3

REPORT INFORMATION
  Report Type: Spontaneous
  Country: US (occurrence: US)
  Receive Date: 20201207
  Receipt Date: 20220808
  Transmission Date: 20221027
  Serious: Yes (Other)
  Sender: FDA-Public Use
  Company Number: US-PFIZER INC-2020481157

PATIENT
  Age: 73 Year
  Sex: Female
  Weight: 56.689 kg

DRUGS (3)
  1. SKELAXIN [Suspect]
     Active Substance: METAXALONE
     Indication: Muscle spasms
     Dosage: 800 MG, AS NEEDED
     Route: 048
  2. SKELAXIN [Suspect]
     Active Substance: METAXALONE
     Dosage: 800 MG, AS NEEDED ([UP TO 2/ DAY])
  3. SKELAXIN [Suspect]
     Active Substance: METAXALONE
     Dosage: 800 MG (QUANTITY FOR 90 DAYS: 270.)

REACTIONS (7)
  - Neuropathy peripheral [Unknown]
  - COVID-19 [Unknown]
  - Osteoarthritis [Unknown]
  - Poor quality sleep [Unknown]
  - Eye disorder [Unknown]
  - Arthritis [Unknown]
  - Nervousness [Unknown]
